FAERS Safety Report 10192110 (Version 1)
Quarter: 2014Q2

REPORT INFORMATION
  Report Type: Spontaneous
  Country: FR (occurrence: FR)
  Receive Date: 20140523
  Receipt Date: 20140523
  Transmission Date: 20141212
  Serious: Yes (Hospitalization)
  Sender: FDA-Public Use
  Company Number: FR-GLAXOSMITHKLINE-B0995653A

PATIENT
  Age: 58 Year
  Sex: Male

DRUGS (8)
  1. ARZERRA [Suspect]
     Indication: WALDENSTROM^S MACROGLOBULINAEMIA
     Route: 042
     Dates: start: 20140428, end: 20140428
  2. SERETIDE [Concomitant]
     Route: 055
  3. MICARDIS [Concomitant]
     Route: 065
  4. AMIODARONE [Concomitant]
     Route: 065
  5. LASILIX [Concomitant]
     Route: 065
  6. INIPOMP [Concomitant]
     Route: 065
  7. CYCLOPHOSPHAMIDE [Concomitant]
     Indication: WALDENSTROM^S MACROGLOBULINAEMIA
     Route: 065
     Dates: start: 20140428
  8. DEXAMETHASONE [Concomitant]
     Indication: WALDENSTROM^S MACROGLOBULINAEMIA
     Route: 065
     Dates: start: 20140428

REACTIONS (6)
  - Conjunctivitis [Recovered/Resolved]
  - Throat irritation [Recovered/Resolved]
  - Eyelid oedema [Recovered/Resolved]
  - Lacrimation increased [Recovered/Resolved]
  - Infusion related reaction [Recovered/Resolved]
  - Off label use [Unknown]
